FAERS Safety Report 6211824-2 (Version None)
Quarter: 2009Q2

REPORT INFORMATION
  Report Type: 
  Country: None (occurrence: None)
  Receive Date: 20090602
  Receipt Date: 20090518
  Transmission Date: 20091009
  Serious: Yes (Other)
  Sender: FDA-Public Use
  Company Number: KR-MERCK-0905KOR00043

PATIENT
  Age: 55 Year
  Sex: Female

DRUGS (3)
  1. TRUSOPT [Suspect]
     Indication: OPEN ANGLE GLAUCOMA
     Route: 047
  2. TRUSOPT [Suspect]
     Indication: OCULAR HYPERTENSION
     Route: 047
  3. EPROSARTAN [Concomitant]
     Indication: HYPERTENSION
     Route: 048

REACTIONS (1)
  - TOXIC EPIDERMAL NECROLYSIS [None]
